FAERS Safety Report 8397568-X (Version None)
Quarter: 2012Q2

REPORT INFORMATION
  Report Type: 
  Country: None (occurrence: None)
  Receive Date: 20120531
  Receipt Date: 20120518
  Transmission Date: 20120825
  Serious: Yes (Death, Other)
  Sender: FDA-Public Use
  Company Number: US-RANBAXY-2012US-56671

PATIENT
  Sex: Female
  Weight: 72.562 kg

DRUGS (10)
  1. AMLODIPINE BESYLATE [Concomitant]
     Indication: HYPERTENSION
     Dosage: UNK
     Route: 065
  2. LORAZEPAM [Concomitant]
     Indication: ANXIETY
     Dosage: UNK
     Route: 065
  3. CRESTOR [Suspect]
     Indication: BLOOD CHOLESTEROL INCREASED
     Dosage: UNK
     Route: 065
     Dates: start: 20110801, end: 20111101
  4. ACIPHEX [Concomitant]
     Indication: OESOPHAGITIS
     Dosage: UNK
     Route: 065
  5. SIMVASTATIN [Suspect]
     Indication: BLOOD CHOLESTEROL INCREASED
     Dosage: 20 MG, QD
     Route: 065
     Dates: start: 20090429, end: 20110601
  6. LIPITOR [Suspect]
     Indication: BLOOD CHOLESTEROL INCREASED
     Dosage: 40 MG, QD
     Route: 048
     Dates: start: 20071009, end: 20090428
  7. ATORVASTATIN CALCIUM [Suspect]
     Indication: BLOOD CHOLESTEROL INCREASED
     Dosage: UNK
     Dates: start: 20120322, end: 20120330
  8. PLAVIX [Concomitant]
     Indication: CARDIAC DISORDER
     Dosage: UNK
     Route: 065
  9. PINDOLOL [Concomitant]
     Indication: CARDIAC DISORDER
     Dosage: UNK
     Route: 065
  10. SIMVASTATIN [Suspect]
     Dosage: 20 MG DAILY
     Dates: start: 20111101

REACTIONS (2)
  - INSOMNIA [None]
  - ADVERSE REACTION [None]
